FAERS Safety Report 8507582-9 (Version None)
Quarter: 2012Q3

REPORT INFORMATION
  Report Type: 
  Country: None (occurrence: None)
  Receive Date: 20120713
  Receipt Date: 20120703
  Transmission Date: 20120928
  Serious: Yes (Hospitalization)
  Sender: FDA-Public Use
  Company Number: US-BIOGENIDEC-2012BI023637

PATIENT
  Sex: Female

DRUGS (1)
  1. AVONEX [Suspect]
     Indication: MULTIPLE SCLEROSIS
     Route: 030
     Dates: start: 20040423

REACTIONS (7)
  - MUSCLE SPASMS [None]
  - BACK DISORDER [None]
  - KNEE ARTHROPLASTY [None]
  - PAIN [None]
  - GAIT DISTURBANCE [None]
  - HEADACHE [None]
  - ARTHRITIS [None]
